FAERS Safety Report 6704908-3 (Version None)
Quarter: 2010Q2

REPORT INFORMATION
  Report Type: 
  Country: None (occurrence: None)
  Receive Date: 20100430
  Receipt Date: 20100217
  Transmission Date: 20101027
  Serious: No
  Sender: FDA-Public Use
  Company Number: US-ASTRAZENECA-2010SE06992

PATIENT
  Age: 45 Year
  Sex: Male

DRUGS (3)
  1. NEXIUM [Suspect]
     Indication: GASTROOESOPHAGEAL REFLUX DISEASE
     Route: 048
     Dates: start: 20100101, end: 20100101
  2. NEXIUM [Suspect]
     Route: 048
     Dates: start: 20100101
  3. ZANTAC [Concomitant]

REACTIONS (2)
  - ERUCTATION [None]
  - MUSCLE RIGIDITY [None]
